FAERS Safety Report 4951916-9 (Version None)
Quarter: 2006Q1

REPORT INFORMATION
  Report Type: 
  Country: None (occurrence: None)
  Receive Date: 20060323
  Receipt Date: 20050930
  Transmission Date: 20060701
  Serious: Yes (Hospitalization, Other)
  Sender: FDA-Public Use
  Company Number: US-MERCK-0510USA02065

PATIENT
  Age: 70 Year
  Sex: Male
  Weight: 68 kg

DRUGS (5)
  1. VIOXX [Suspect]
     Indication: BACK PAIN
     Route: 048
     Dates: start: 20000101, end: 20010801
  2. VIOXX [Suspect]
     Route: 048
     Dates: start: 20000101, end: 20010801
  3. SYNTHROID [Concomitant]
     Route: 065
  4. DILTIAZEM MALATE [Concomitant]
     Route: 065
  5. DIOVAN [Concomitant]
     Indication: HYPERTENSION
     Route: 065
     Dates: start: 20000101

REACTIONS (3)
  - BLOOD CHOLESTEROL INCREASED [None]
  - CARDIAC DISORDER [None]
  - MYOCARDIAL INFARCTION [None]
